FAERS Safety Report 7199432-0 (Version None)
Quarter: 2010Q4

REPORT INFORMATION
  Report Type: 
  Country: None (occurrence: None)
  Receive Date: 20101228
  Receipt Date: 20101215
  Transmission Date: 20110411
  Serious: Yes (Other)
  Sender: FDA-Public Use
  Company Number: GB-JNJFOC-20101207571

PATIENT
  Sex: Female

DRUGS (3)
  1. MICONAZOLE [Suspect]
     Route: 048
  2. MICONAZOLE [Suspect]
     Indication: ORAL FUNGAL INFECTION
     Route: 048
  3. WARFARIN SODIUM [Interacting]
     Indication: PRODUCT USED FOR UNKNOWN INDICATION
     Route: 065

REACTIONS (4)
  - BLOOD BLISTER [None]
  - DRUG INTERACTION [None]
  - INCREASED TENDENCY TO BRUISE [None]
  - PROTHROMBIN TIME RATIO INCREASED [None]
